FAERS Safety Report 11810312 (Version 3)
Quarter: 2015Q4

REPORT INFORMATION
  Report Type: Spontaneous
  Country: US (occurrence: US)
  Receive Date: 20151208
  Receipt Date: 20151221
  Transmission Date: 20160305
  Serious: Yes (Hospitalization)
  Sender: FDA-Public Use
  Company Number: US-UNITED THERAPEUTICS-UNT-2015-015187

PATIENT
  Age: 44 Year
  Sex: Male
  Weight: 86.17 kg

DRUGS (2)
  1. TYVASO [Suspect]
     Active Substance: TREPROSTINIL
     Dosage: 18-54 ?G, QID
  2. TYVASO [Suspect]
     Active Substance: TREPROSTINIL
     Indication: PULMONARY HYPERTENSION
     Dosage: 18-54 ?G, QID
     Dates: start: 20150407

REACTIONS (8)
  - Pneumonia [Unknown]
  - Dysstasia [Unknown]
  - Fatigue [Unknown]
  - Grip strength decreased [Unknown]
  - Muscle spasms [Unknown]
  - Ammonia abnormal [Unknown]
  - Hepatic encephalopathy [Unknown]
  - Dizziness [Unknown]

NARRATIVE: CASE EVENT DATE: 20151129
